FAERS Safety Report 6186636-9 (Version None)
Quarter: 2009Q2

REPORT INFORMATION
  Report Type: 
  Country: None (occurrence: None)
  Receive Date: 20090512
  Receipt Date: 20090429
  Transmission Date: 20091009
  Serious: Yes (Other)
  Sender: FDA-Public Use
  Company Number: US-PFIZER INC-2006101889

PATIENT
  Sex: Female

DRUGS (14)
  1. PROVERA [Suspect]
     Indication: HORMONE REPLACEMENT THERAPY
     Dosage: 2.5
     Route: 048
     Dates: start: 19881201, end: 19960528
  2. PREMARIN [Suspect]
     Indication: HORMONE REPLACEMENT THERAPY
     Dosage: 0.625
     Route: 065
     Dates: start: 19890301, end: 19960528
  3. PREMPRO [Suspect]
     Indication: HORMONE REPLACEMENT THERAPY
     Dosage: 0.625/2.5
     Route: 065
     Dates: start: 19960528, end: 20010719
  4. ESTRADERM [Suspect]
     Indication: HORMONE REPLACEMENT THERAPY
     Dosage: UNK
     Dates: start: 19890101, end: 19890301
  5. LISINOPRIL [Concomitant]
     Indication: BLOOD PRESSURE MANAGEMENT
     Dosage: 10 MG, UNK
     Dates: start: 19930101
  6. VERAPAMIL [Concomitant]
     Indication: BLOOD PRESSURE MANAGEMENT
     Dosage: 180 MG, UNK
     Dates: start: 19930101
  7. FUROSEMIDE [Concomitant]
     Indication: DIURETIC THERAPY
     Dosage: 20 TO 40MG 1 TO 3 X/WEEK
     Dates: start: 19930101
  8. FUROSEMIDE [Concomitant]
     Indication: BLOOD PRESSURE MANAGEMENT
  9. HYDROCHLOROTHIAZIDE [Concomitant]
     Indication: BLOOD GLUCOSE FLUCTUATION
     Dosage: UNK
     Dates: start: 19960101, end: 20030101
  10. GLUCOPHAGE [Concomitant]
     Indication: BLOOD GLUCOSE FLUCTUATION
     Dosage: UNK
     Dates: start: 19880401, end: 20060101
  11. AVANDIA [Concomitant]
     Indication: BLOOD GLUCOSE FLUCTUATION
     Dosage: UNK
     Dates: start: 19940101, end: 20060101
  12. THEOPHYLLINE [Concomitant]
     Indication: ASTHMA
     Dosage: UNK
     Dates: start: 19850101, end: 20060101
  13. AZMACORT [Concomitant]
     Indication: ASTHMA
     Dosage: UNK
     Dates: start: 19850101, end: 20060101
  14. PRAVACHOL [Concomitant]
     Indication: BLOOD CHOLESTEROL
     Dosage: 80 MG, UNK
     Dates: start: 19990601

REACTIONS (1)
  - BREAST CANCER [None]
